FAERS Safety Report 8619306-5 (Version None)
Quarter: 2012Q3

REPORT INFORMATION
  Report Type: 
  Country: None (occurrence: None)
  Receive Date: 20120824
  Receipt Date: 20120816
  Transmission Date: 20120928
  Serious: Yes (Hospitalization)
  Sender: FDA-Public Use
  Company Number: CN-ASTELLAS-2012JP007784

PATIENT
  Sex: Male

DRUGS (4)
  1. TACROLIMUS [Suspect]
     Dosage: 1.5 MG, UNKNOWN/D
     Route: 048
     Dates: start: 20041209
  2. CELLCEPT [Suspect]
     Indication: LIVER TRANSPLANT
     Dosage: 250 MG, UID/QD
     Route: 048
     Dates: start: 20041209
  3. PREDNISONE TAB [Concomitant]
     Dosage: UNK
     Route: 065
     Dates: start: 20041209
  4. TACROLIMUS [Suspect]
     Indication: LIVER TRANSPLANT
     Dosage: UNK
     Route: 048

REACTIONS (4)
  - IMMUNOSUPPRESSANT DRUG LEVEL INCREASED [None]
  - WEIGHT DECREASED [None]
  - GASTRIC HAEMORRHAGE [None]
  - PORTAL VEIN THROMBOSIS [None]
